FAERS Safety Report 7700028-X (Version None)
Quarter: 2011Q3

REPORT INFORMATION
  Report Type: 
  Country: None (occurrence: None)
  Receive Date: 20110822
  Receipt Date: 20110808
  Transmission Date: 20111222
  Serious: Yes (Other)
  Sender: FDA-Public Use
  Company Number: CA-ELI_LILLY_AND_COMPANY-CA201108002525

PATIENT
  Sex: Male

DRUGS (9)
  1. ZYPREXA [Suspect]
     Dosage: 10 MG, BID
  2. ALTACE [Concomitant]
  3. ZYPREXA [Suspect]
     Dosage: 30 MG, EACH EVENING
  4. ZYPREXA [Suspect]
     Dosage: 5 MG, EACH EVENING
  5. ZYPREXA [Suspect]
     Indication: SCHIZOPHRENIA
     Dosage: 2.5 MG, BID
  6. ZYPREXA [Suspect]
     Dosage: 10 MG, QD
  7. RISPERDAL [Concomitant]
  8. ZYPREXA [Suspect]
     Dosage: 7.5 MG, BID
  9. HALDOL [Concomitant]

REACTIONS (7)
  - HYPERGLYCAEMIA [None]
  - HEPATIC STEATOSIS [None]
  - WEIGHT INCREASED [None]
  - OVERDOSE [None]
  - LOSS OF CONSCIOUSNESS [None]
  - DYSLIPIDAEMIA [None]
  - GRAND MAL CONVULSION [None]
